FAERS Safety Report 9881731 (Version 4)
Quarter: 2014Q1

REPORT INFORMATION
  Report Type: Spontaneous
  Country: DE (occurrence: DE)
  Receive Date: 20140207
  Receipt Date: 20140325
  Transmission Date: 20141002
  Serious: Yes (Other)
  Sender: FDA-Public Use
  Company Number: DE-TEVA-460095GER

PATIENT
  Age: 1 Year
  Sex: Female
  Weight: 10 kg

DRUGS (1)
  1. CEFUROXIM-RATIOPHARM 125 MG/5 ML TS [Suspect]
     Indication: STREPTOCOCCAL INFECTION
     Dosage: 8.4 ML DAILY;
     Route: 048

REACTIONS (1)
  - Diarrhoea haemorrhagic [Recovered/Resolved]
